FAERS Safety Report 25427810 (Version 1)
Quarter: 2025Q2

REPORT INFORMATION
  Report Type: Spontaneous
  Country: DE (occurrence: DE)
  Receive Date: 20250612
  Receipt Date: 20250612
  Transmission Date: 20250716
  Serious: Yes (Other)
  Sender: PFIZER
  Company Number: None

PATIENT

DRUGS (1)
  1. CYTOTEC [Suspect]
     Active Substance: MISOPROSTOL
     Indication: Labour induction
     Route: 064
     Dates: start: 20190107, end: 20190107

REACTIONS (7)
  - Foetal heart rate decreased [Unknown]
  - Oxygen saturation decreased [Unknown]
  - Crying [Unknown]
  - Insomnia [Unknown]
  - Hypophagia [Unknown]
  - Fluid intake reduced [Unknown]
  - Foetal exposure during pregnancy [Unknown]

NARRATIVE: CASE EVENT DATE: 20190107
